FAERS Safety Report 10021523 (Version 1)
Quarter: 2014Q1

REPORT INFORMATION
  Report Type: Spontaneous
  Country: US (occurrence: None)
  Receive Date: 20140318
  Receipt Date: 20140318
  Transmission Date: 20141002
  Serious: Yes (Other)
  Sender: FDA-Public Use
  Company Number: None

PATIENT
  Age: 78 Year
  Sex: Female
  Weight: 64 kg

DRUGS (15)
  1. XARELTO [Suspect]
  2. ASPIRIN [Concomitant]
  3. DILTIAZEM [Concomitant]
  4. LOPRESSOR [Concomitant]
  5. HYDROCHLOROTHIAZIDE [Concomitant]
  6. EZETIMIBE [Concomitant]
  7. GABAPENTIN [Concomitant]
  8. GLUCOSAMINE/CHONDROITIN [Concomitant]
  9. OSCAL [Concomitant]
  10. MVI [Concomitant]
  11. ROSUVASTATIN [Concomitant]
  12. PREDNISONE [Concomitant]
  13. OXYCODONE [Concomitant]
  14. TYLENOL X-STRENGTH [Concomitant]
  15. TRANEXAMIC ACID IV [Concomitant]

REACTIONS (1)
  - Conjunctival haemorrhage [None]
